FAERS Safety Report 11580768 (Version 2)
Quarter: 2015Q4

REPORT INFORMATION
  Report Type: Spontaneous
  Country: SI (occurrence: SI)
  Receive Date: 20151001
  Receipt Date: 20151031
  Transmission Date: 20160304
  Serious: Yes (Death, Hospitalization, Other)
  Sender: FDA-Public Use
  Company Number: SI-ABBVIE-15K-261-1471414-00

PATIENT
  Age: 52 Year
  Sex: Male
  Weight: 103 kg

DRUGS (5)
  1. NOLPAZA [Concomitant]
     Active Substance: PANTOPRAZOLE SODIUM
     Indication: GASTRITIS
     Dosage: PERMANENT
     Route: 048
  2. ALOPURINOL [Concomitant]
     Active Substance: ALLOPURINOL
     Indication: HYPERURICAEMIA
     Dosage: PERMANENT
     Route: 048
  3. DICLO DUO [Concomitant]
     Indication: PSORIATIC ARTHROPATHY
     Dosage: PERMANENT
     Route: 048
  4. METOTREXAT [Concomitant]
     Active Substance: METHOTREXATE SODIUM
     Indication: PSORIATIC ARTHROPATHY
     Route: 048
     Dates: start: 20061130
  5. HUMIRA [Suspect]
     Active Substance: ADALIMUMAB
     Indication: PSORIATIC ARTHROPATHY
     Route: 058
     Dates: start: 20110317, end: 20150611

REACTIONS (2)
  - Cholangiocarcinoma [Fatal]
  - Ascites [Unknown]

NARRATIVE: CASE EVENT DATE: 201506
